FAERS Safety Report 11671794 (Version 2)
Quarter: 2016Q4

REPORT INFORMATION
  Report Type: Report from Study
  Country: US (occurrence: US)
  Receive Date: 20151028
  Receipt Date: 20161118
  Transmission Date: 20170206
  Serious: Yes (Death)
  Sender: FDA-Public Use
  Company Number: PHEH2015US001213

PATIENT
  Age: 66 Year
  Sex: Male

DRUGS (1)
  1. MYFORTIC [Suspect]
     Active Substance: MYCOPHENOLATE SODIUM
     Indication: PRODUCT USED FOR UNKNOWN INDICATION
     Dosage: 360 MG, TID (180 MG, TOOK TWO TABLETS, THREE TIMES A DAY)
     Route: 048

REACTIONS (2)
  - Death [Fatal]
  - Pain in extremity [Unknown]

NARRATIVE: CASE EVENT DATE: 20160916
